FAERS Safety Report 4627012-7 (Version None)
Quarter: 2005Q2

REPORT INFORMATION
  Report Type: 
  Country: None (occurrence: None)
  Receive Date: 20050405
  Receipt Date: 20050324
  Transmission Date: 20051028
  Serious: Yes (Death, Hospitalization, Other)
  Sender: FDA-Public Use
  Company Number: PHEH2005US03608

PATIENT
  Age: 83 Year
  Sex: Female

DRUGS (9)
  1. NORVASC [Concomitant]
     Indication: HYPERTENSION
     Dosage: 10 G, QD
     Dates: start: 19970318, end: 20020709
  2. FEOSOL [Concomitant]
     Indication: IRON DEFICIENCY
     Dosage: 325 MG, QD
     Dates: start: 20010626, end: 20020709
  3. VITAMIN C [Concomitant]
     Dosage: 500 MG, QD
     Dates: start: 20010626, end: 20020709
  4. GARLIC [Concomitant]
  5. NEPHROCAPS [Concomitant]
     Dosage: 1 MG, QD
  6. EPOGEN [Concomitant]
     Dosage: 40000 UNITS QFRIDAY
     Route: 058
  7. CALCIUM CARBONATE [Concomitant]
     Dosage: 500 MG, TID
  8. SODIUM BICARBONATE [Concomitant]
     Dosage: 650 MG, QD
  9. ZOMETA [Suspect]
     Indication: METASTASES TO BONE
     Dosage: 3MG Q4W
     Dates: start: 20020322, end: 20020517

REACTIONS (16)
  - ANAEMIA [None]
  - ANOREXIA [None]
  - ASTHENIA [None]
  - BLOOD CALCIUM DECREASED [None]
  - BLOOD CREATININE INCREASED [None]
  - BLOOD IRON DECREASED [None]
  - BLOOD POTASSIUM DECREASED [None]
  - BLOOD UREA INCREASED [None]
  - CREATININE RENAL CLEARANCE DECREASED [None]
  - DEHYDRATION [None]
  - FATIGUE [None]
  - PACKED RED BLOOD CELL TRANSFUSION [None]
  - REFUSAL OF TREATMENT BY PATIENT [None]
  - RENAL ATROPHY [None]
  - RENAL FAILURE ACUTE [None]
  - SERUM FERRITIN INCREASED [None]
